FAERS Safety Report 9640221 (Version 2)
Quarter: 2013Q4

REPORT INFORMATION
  Report Type: Spontaneous
  Country: US (occurrence: US)
  Receive Date: 20131023
  Receipt Date: 20131104
  Transmission Date: 20140711
  Serious: No
  Sender: FDA-Public Use
  Company Number: US-PFIZER INC-2013300510

PATIENT
  Age: 33 Year
  Sex: Female
  Weight: 83.45 kg

DRUGS (2)
  1. NEURONTIN [Suspect]
     Indication: BACK PAIN
     Dosage: 600 MG, 3X/DAY
     Dates: start: 201208
  2. ACIPHEX [Concomitant]
     Dosage: 20 MG, DAILY

REACTIONS (2)
  - Drug dispensing error [Unknown]
  - Blood creatinine decreased [Unknown]
